FAERS Safety Report 12583315 (Version 1)
Quarter: 2016Q3

REPORT INFORMATION
  Report Type: Spontaneous
  Country: US (occurrence: US)
  Receive Date: 20160722
  Receipt Date: 20160722
  Transmission Date: 20161109
  Serious: No
  Sender: FDA-Public Use
  Company Number: US-FRI-1000078830

PATIENT
  Age: 85 Year
  Sex: Female

DRUGS (1)
  1. NAMENDA XR [Suspect]
     Active Substance: MEMANTINE HYDROCHLORIDE
     Indication: DEMENTIA
     Dosage: 7.5 MG
     Route: 048
     Dates: start: 20150801

REACTIONS (1)
  - Lip swelling [Not Recovered/Not Resolved]

NARRATIVE: CASE EVENT DATE: 20150802
